FAERS Safety Report 23595058 (Version 1)
Quarter: 2024Q1

REPORT INFORMATION
  Report Type: Spontaneous
  Country: FR (occurrence: FR)
  Receive Date: 20240305
  Receipt Date: 20240305
  Transmission Date: 20240410
  Serious: Yes (Other)
  Sender: FDA-Public Use
  Company Number: FR-SUN PHARMACEUTICAL INDUSTRIES LTD-2016R1-127813

PATIENT
  Age: 58 Year
  Sex: Female

DRUGS (7)
  1. PREGABALIN [Suspect]
     Active Substance: PREGABALIN
     Indication: Fibromyalgia
     Dosage: 600 MG, DAILY (300 MG, 2X PER DAY)
     Route: 048
  2. PREGABALIN [Suspect]
     Active Substance: PREGABALIN
     Dosage: 300 MG, DAILY (150 MG, BID)
     Route: 048
     Dates: start: 201511
  3. ACROSAR D [Concomitant]
     Indication: Hypertension
     Dosage: UNK
     Route: 065
  4. BROMAZEPAM [Concomitant]
     Active Substance: BROMAZEPAM
     Indication: Adjustment disorder with depressed mood
     Dosage: UNK
     Route: 065
  5. CANDESARTAN [Concomitant]
     Active Substance: CANDESARTAN
     Indication: Hypertension
     Dosage: UNK
     Route: 065
  6. CLOMIPRAMINE [Concomitant]
     Active Substance: CLOMIPRAMINE
     Indication: Adjustment disorder with depressed mood
     Dosage: 75 MILLIGRAM
     Route: 065
  7. PROPRANOLOL [Concomitant]
     Active Substance: PROPRANOLOL HYDROCHLORIDE
     Indication: Postural tremor
     Dosage: UNK
     Route: 065

REACTIONS (11)
  - Parkinsonism [Recovering/Resolving]
  - Weight increased [Recovering/Resolving]
  - Facial paralysis [Recovering/Resolving]
  - Myoclonus [Recovering/Resolving]
  - Postural tremor [Recovering/Resolving]
  - Bradykinesia [Recovering/Resolving]
  - Leukoencephalopathy [Unknown]
  - Tremor [Recovering/Resolving]
  - Cogwheel rigidity [Recovering/Resolving]
  - Reduced facial expression [Recovering/Resolving]
  - Parkinson^s disease [Recovered/Resolved with Sequelae]

NARRATIVE: CASE EVENT DATE: 20150101
